FAERS Safety Report 20208177 (Version 6)
Quarter: 2022Q2

REPORT INFORMATION
  Report Type: Report from Study
  Country: US (occurrence: US)
  Receive Date: 20211220
  Receipt Date: 20220623
  Transmission Date: 20220721
  Serious: Yes (Hospitalization)
  Sender: FDA-Public Use
  Company Number: US-PFIZER INC-202101752662

PATIENT
  Age: 60 Year
  Sex: Female
  Weight: 90.6 kg

DRUGS (31)
  1. IRINOTECAN HYDROCHLORIDE [Suspect]
     Active Substance: IRINOTECAN HYDROCHLORIDE
     Indication: Pancreatic carcinoma metastatic
     Dosage: 303 MG,1 IN 2 WK
     Route: 042
     Dates: start: 20211026, end: 20211026
  2. IRINOTECAN HYDROCHLORIDE [Suspect]
     Active Substance: IRINOTECAN HYDROCHLORIDE
     Dosage: 242.4 MG, 1 IN 2 WK
     Route: 042
     Dates: start: 20211109, end: 20211109
  3. OXALIPLATIN [Suspect]
     Active Substance: OXALIPLATIN
     Indication: Pancreatic carcinoma metastatic
     Dosage: DAYS 1 AND 15 OF EACH 28-DAY CYCLE (171.7 MG,1 IN 2 WK)
     Route: 042
     Dates: start: 20211026, end: 20211109
  4. LEUCOVORIN [Suspect]
     Active Substance: LEUCOVORIN
     Indication: Pancreatic carcinoma metastatic
     Dosage: DAYS 1 AND 15 OF EACH 28-DAY CYCLE (808 MG,1 IN 2 WK)
     Route: 042
     Dates: start: 20211026, end: 20211109
  5. FLUOROURACIL [Suspect]
     Active Substance: FLUOROURACIL
     Indication: Pancreatic carcinoma metastatic
     Dosage: 48 HOUR CONTINUOUS INFUSION STARTING ON DAYS 1 AND 15 OF EACH 28-DAY CYCLE (4848 MG,1 IN 2 WK)
     Route: 042
     Dates: start: 20211026, end: 20211109
  6. GILORALIMAB [Suspect]
     Active Substance: GILORALIMAB
     Indication: Pancreatic carcinoma metastatic
     Dosage: 9.05 MG, 1 IN 4 WK
     Route: 042
     Dates: start: 20211028, end: 20211028
  7. BUDIGALIMAB [Suspect]
     Active Substance: BUDIGALIMAB
     Indication: Pancreatic carcinoma metastatic
     Dosage: 500 MG, 1 IN 4 WK
     Route: 042
     Dates: start: 20211028, end: 20211028
  8. LOVASTATIN [Concomitant]
     Active Substance: LOVASTATIN
     Indication: Hyperlipidaemia
     Dosage: 40 MG,1 IN 1 D
     Route: 048
     Dates: start: 20120101, end: 20211125
  9. DOCUSATE SODIUM [Concomitant]
     Active Substance: DOCUSATE SODIUM
     Indication: Constipation
     Dosage: 100 MG, 1 IN 1 AS REQUIRED
     Route: 048
     Dates: start: 20211014
  10. POLYETHYLENE GLYCOL 3350 [Concomitant]
     Active Substance: POLYETHYLENE GLYCOL 3350
     Indication: Constipation
     Dosage: 17 GM, 1 AS REQUIRED
     Route: 048
     Dates: start: 20120101
  11. TRAZODONE [Concomitant]
     Active Substance: TRAZODONE HYDROCHLORIDE
     Indication: Insomnia
     Dosage: 100 MG, 1 IN 1 DAY
     Route: 048
     Dates: start: 20200101, end: 20211121
  12. OLANZAPINE [Concomitant]
     Active Substance: OLANZAPINE
     Indication: Insomnia
     Dosage: 5 MG, 1 IN 1 D
     Route: 048
     Dates: start: 20211122, end: 20211124
  13. OLANZAPINE [Concomitant]
     Active Substance: OLANZAPINE
     Indication: Nausea
  14. AMLODIPINE [Concomitant]
     Active Substance: AMLODIPINE BESYLATE
     Indication: Hypertension
     Dosage: 10 MG, 1 IN 1 D
     Route: 048
     Dates: start: 20080101, end: 20211125
  15. CARVEDILOL [Concomitant]
     Active Substance: CARVEDILOL
     Indication: Hypertension
     Dosage: 6.25 MG (3.125 MG,2 IN 1 D)
     Route: 048
     Dates: start: 20140101, end: 20211125
  16. LISINOPRIL [Concomitant]
     Active Substance: LISINOPRIL
     Indication: Hypertension
     Dosage: 30 MG, 1 IN 1 D
     Route: 048
     Dates: start: 20080101, end: 20211130
  17. ALPRAZOLAM [Concomitant]
     Active Substance: ALPRAZOLAM
     Indication: Anxiety
     Dosage: 0.5 MG, 1 IN 1 AS REQUIRED
     Route: 048
     Dates: start: 20211110
  18. FLUOXETINE [Concomitant]
     Active Substance: FLUOXETINE HYDROCHLORIDE
     Indication: Depression
     Dosage: 20 MG, 1 IN 1 D
     Route: 048
     Dates: start: 20160101, end: 20211230
  19. FLUOXETINE [Concomitant]
     Active Substance: FLUOXETINE HYDROCHLORIDE
     Indication: Anxiety
  20. DULAGLUTIDE [Concomitant]
     Active Substance: DULAGLUTIDE
     Indication: Diabetes mellitus
     Dosage: 1.5 MG, 1 IN 1 WEEK
     Route: 048
     Dates: start: 20170101, end: 20211225
  21. INSULIN GLARGINE [Concomitant]
     Active Substance: INSULIN GLARGINE
     Indication: Diabetes mellitus
     Dosage: 72 UNIT 1 IN 1 D
     Route: 058
     Dates: start: 20170101, end: 20211125
  22. INSULIN LISPRO [Concomitant]
     Active Substance: INSULIN LISPRO
     Indication: Diabetes mellitus
     Dosage: 25 UNIT, 2 IN 1 D
     Route: 058
     Dates: start: 20170101, end: 20211126
  23. PANTOPRAZOLE [Concomitant]
     Active Substance: PANTOPRAZOLE
     Indication: Gastrooesophageal reflux disease
     Dosage: 40 MG, 1 IN 1 DAY
     Route: 048
     Dates: start: 20171201
  24. LOPERAMIDE [Concomitant]
     Active Substance: LOPERAMIDE
     Indication: Diarrhoea
     Dosage: 2 TABLET, 1 AS REQUIRED
     Route: 048
     Dates: start: 20211028, end: 20211101
  25. LOPERAMIDE [Concomitant]
     Active Substance: LOPERAMIDE
     Dosage: 4 MG, 1 AS REQUIRED
     Route: 048
     Dates: start: 20211101
  26. VITAMIN B6 [Concomitant]
     Active Substance: PYRIDOXINE HYDROCHLORIDE
     Indication: Vitamin B complex deficiency
     Dosage: 100 MG, 1 IN 1 D
     Route: 048
     Dates: start: 20210801, end: 20211125
  27. VITAMIN D3 [Concomitant]
     Active Substance: CHOLECALCIFEROL
     Indication: Vitamin D decreased
     Dosage: 1000 IU, 1 IN 1 DAY
     Route: 048
     Dates: start: 20130101, end: 20211125
  28. PANCRELIPASE [Concomitant]
     Active Substance: PANCRELIPASE
     Indication: Pancreatic enzymes decreased
     Dosage: 288000 IU (72000 UNIT, 4 IN 1 D)
     Route: 048
     Dates: start: 20210101, end: 20211130
  29. OXYGEN [Concomitant]
     Active Substance: OXYGEN
     Indication: Sleep apnoea syndrome
     Dosage: QHS (2 LIT)
     Route: 045
     Dates: start: 20210601, end: 20211124
  30. ONDANSETRON [Concomitant]
     Active Substance: ONDANSETRON
     Indication: Nausea
     Dosage: 8 MG,1 AS REQUIRED
     Route: 048
     Dates: start: 20211014
  31. ONDANSETRON [Concomitant]
     Active Substance: ONDANSETRON
     Dosage: CONTINUOUS (40 %)
     Route: 048
     Dates: start: 20211124

REACTIONS (6)
  - Hypoxia [Recovered/Resolved]
  - Pyrexia [Recovered/Resolved]
  - Blood creatinine increased [Recovered/Resolved]
  - Hypotension [Recovered/Resolved]
  - Acute kidney injury [Recovered/Resolved]
  - Dysphagia [Recovered/Resolved]

NARRATIVE: CASE EVENT DATE: 20211124
